FAERS Safety Report 8192999-5 (Version None)
Quarter: 2012Q1

REPORT INFORMATION
  Report Type: 
  Country: None (occurrence: None)
  Receive Date: 20120308
  Receipt Date: 20120227
  Transmission Date: 20120608
  Serious: Yes (Other)
  Sender: FDA-Public Use
  Company Number: GB-JNJFOC-20111200431

PATIENT
  Sex: Male
  Weight: 62 kg

DRUGS (5)
  1. MESALAMINE [Concomitant]
     Indication: PREMEDICATION
     Route: 048
  2. REMICADE [Suspect]
     Indication: CROHN'S DISEASE
     Dosage: 2 DOSES
     Route: 042
     Dates: start: 20100423, end: 20100611
  3. MESALAMINE [Concomitant]
     Indication: CROHN'S DISEASE
     Route: 048
  4. AZATHIOPRINE [Concomitant]
     Indication: CROHN'S DISEASE
     Route: 048
  5. AZATHIOPRINE [Concomitant]
     Indication: PREMEDICATION
     Route: 048

REACTIONS (3)
  - HYPOTENSION [None]
  - CHEST PAIN [None]
  - INFUSION RELATED REACTION [None]
